FAERS Safety Report 8555417 (Version 3)
Quarter: 2012Q4

REPORT INFORMATION
  Report Type: 
  Country: FR (occurrence: FR)
  Receive Date: 20120510
  Receipt Date: 20120924
  Transmission Date: 20130627
  Serious: Yes (Other)
  Sender: FDA-Public Use
  Company Number: PHHY2012FR031307

PATIENT
  Sex: Male
  Weight: 68 kg

DRUGS (6)
  1. RASILEZ [Suspect]
     Indication: HYPERTENSION
     Dosage: 150 mg, QD
     Dates: start: 20120109, end: 20120424
  2. LOXEN [Suspect]
     Indication: HYPERTENSION
  3. NEBIVOLOL [Suspect]
     Dosage: 5 mg, QD
     Dates: start: 20120104, end: 20120109
  4. TEMERIT [Suspect]
     Indication: HYPERTENSION
     Dates: start: 20090924, end: 20120104
  5. VASOBRAL [Concomitant]
  6. PRAVASTATIN [Concomitant]
     Indication: HYPERCHOLESTEROLAEMIA
     Dosage: 10 mg, QD
     Dates: start: 20070227

REACTIONS (6)
  - Acarodermatitis [Recovering/Resolving]
  - Pruritus [Recovering/Resolving]
  - Erythema [Recovering/Resolving]
  - Eczema [Recovering/Resolving]
  - Eczema [Recovering/Resolving]
  - Photosensitivity reaction [Recovering/Resolving]
